FAERS Safety Report 11735338 (Version 3)
Quarter: 2016Q1

REPORT INFORMATION
  Report Type: Report from Study
  Country: EC (occurrence: EC)
  Receive Date: 20151113
  Receipt Date: 20160323
  Transmission Date: 20160525
  Serious: Yes (Hospitalization)
  Sender: FDA-Public Use
  Company Number: PHHY2015EC086794

PATIENT
  Age: 48 Year
  Sex: Female

DRUGS (3)
  1. SANDOSTATIN LAR DEPOT [Suspect]
     Active Substance: OCTREOTIDE ACETATE
     Dosage: 20 MG, (37 DAYS AFTER THE PREVIOUS DOSE)
     Route: 030
     Dates: start: 20160310
  2. SANDOSTATIN LAR DEPOT [Suspect]
     Active Substance: OCTREOTIDE ACETATE
     Dosage: 20 MG, (22 DAYS AFTER THE PREVIOUS DOSE)
     Route: 030
     Dates: start: 20151208
  3. SANDOSTATIN LAR DEPOT [Suspect]
     Active Substance: OCTREOTIDE ACETATE
     Indication: ACROMEGALY
     Dosage: 40 MG, QMO
     Route: 030
     Dates: start: 20140827, end: 20151207

REACTIONS (2)
  - Inappropriate schedule of drug administration [Unknown]
  - Varicose vein [Recovering/Resolving]

NARRATIVE: CASE EVENT DATE: 20151208
